FAERS Safety Report 8221874-2 (Version None)
Quarter: 2012Q1

REPORT INFORMATION
  Report Type: 
  Country: None (occurrence: None)
  Receive Date: 20120320
  Receipt Date: 20120309
  Transmission Date: 20120608
  Serious: Yes (Other)
  Sender: FDA-Public Use
  Company Number: US-JNJFOC-20120305574

PATIENT
  Sex: Male
  Weight: 83.01 kg

DRUGS (5)
  1. AVODART [Concomitant]
     Indication: PROSTATE CANCER
     Route: 048
     Dates: start: 20070101
  2. COUMADIN [Concomitant]
     Indication: ANTICOAGULANT THERAPY
     Route: 048
     Dates: start: 20020101
  3. ZYTIGA [Suspect]
     Indication: PROSTATE CANCER
     Route: 048
     Dates: start: 20110401
  4. ALLOPURINOL [Concomitant]
     Indication: GOUT
     Route: 048
     Dates: start: 20070101
  5. PREDNISONE [Concomitant]
     Indication: PROSTATE CANCER
     Route: 048
     Dates: start: 20110401

REACTIONS (6)
  - FLUID RETENTION [None]
  - DRUG INEFFECTIVE [None]
  - INFLAMMATION [None]
  - CLUMSINESS [None]
  - BONE SCAN ABNORMAL [None]
  - PANIC ATTACK [None]
